FAERS Safety Report 14376782 (Version 2)
Quarter: 2018Q1

REPORT INFORMATION
  Report Type: Spontaneous
  Country: US (occurrence: US)
  Receive Date: 20180111
  Receipt Date: 20180316
  Transmission Date: 20180509
  Serious: Yes (Other)
  Sender: FDA-Public Use
  Company Number: US-REGENERON PHARMACEUTICALS, INC.-2018-10228

PATIENT

DRUGS (2)
  1. EYLEA [Suspect]
     Active Substance: AFLIBERCEPT
     Dosage: 2 MG, MONTHLY, LAST DOSE
     Route: 031
     Dates: start: 20171213, end: 20171213
  2. EYLEA [Suspect]
     Active Substance: AFLIBERCEPT
     Indication: RETINAL VEIN OCCLUSION
     Dosage: 2 MG, MONTHLY
     Route: 031
     Dates: start: 20170517

REACTIONS (2)
  - Endophthalmitis [Unknown]
  - Propionibacterium infection [Unknown]

NARRATIVE: CASE EVENT DATE: 20171215
